FAERS Safety Report 18657054 (Version 2)
Quarter: 2022Q3

REPORT INFORMATION
  Report Type: Spontaneous
  Country: US (occurrence: US)
  Receive Date: 20201224
  Receipt Date: 20220828
  Transmission Date: 20221027
  Serious: Yes (Other)
  Sender: FDA-Public Use
  Company Number: US-SAARTEMIS-SAC202012160612

PATIENT
  Sex: Female

DRUGS (1)
  1. ZANTAC [Suspect]
     Active Substance: RANITIDINE HYDROCHLORIDE
     Indication: Dyspepsia
     Dosage: 75 MG, QD

REACTIONS (3)
  - Breast cancer stage I [Recovered/Resolved]
  - Oesophageal carcinoma [Unknown]
  - Skin cancer [Unknown]

NARRATIVE: CASE EVENT DATE: 20150101
